FAERS Safety Report 7157843-3 (Version None)
Quarter: 2010Q4

REPORT INFORMATION
  Report Type: 
  Country: None (occurrence: None)
  Receive Date: 20101214
  Receipt Date: 20101003
  Transmission Date: 20110411
  Serious: No
  Sender: FDA-Public Use
  Company Number: A0884677A

PATIENT
  Age: 38 Year
  Sex: Male

DRUGS (2)
  1. NICORETTE (MINT) [Suspect]
  2. NICORETTE [Suspect]

REACTIONS (2)
  - THERMAL BURN [None]
  - TOOTH DISORDER [None]
